FAERS Safety Report 12549629 (Version 3)
Quarter: 2016Q3

REPORT INFORMATION
  Report Type: Spontaneous
  Country: US (occurrence: US)
  Receive Date: 20160712
  Receipt Date: 20160715
  Transmission Date: 20161109
  Serious: Yes (Hospitalization)
  Sender: FDA-Public Use
  Company Number: US-CELGENEUS-USA-2016071386

PATIENT
  Sex: Female
  Weight: 55.39 kg

DRUGS (1)
  1. REVLIMID [Suspect]
     Active Substance: LENALIDOMIDE
     Indication: 5Q MINUS SYNDROME
     Dosage: 5 MILLIGRAM
     Route: 048
     Dates: start: 201605

REACTIONS (3)
  - Rash [Unknown]
  - Pancreatitis [Unknown]
  - Peritonitis [Unknown]

NARRATIVE: CASE EVENT DATE: 2016
